FAERS Safety Report 7084565-X (Version None)
Quarter: 2010Q4

REPORT INFORMATION
  Report Type: 
  Country: None (occurrence: None)
  Receive Date: 20101104
  Receipt Date: 20101028
  Transmission Date: 20110411
  Serious: Yes (Hospitalization)
  Sender: FDA-Public Use
  Company Number: US-AMGEN-USACT2010000919

PATIENT

DRUGS (2)
  1. CINACALCET HCL [Suspect]
     Indication: HYPERPARATHYROIDISM SECONDARY
  2. HECTOROL [Concomitant]

REACTIONS (1)
  - ANGINA UNSTABLE [None]
